FAERS Safety Report 12068798 (Version 1)
Quarter: 2016Q1

REPORT INFORMATION
  Report Type: Spontaneous
  Country: US (occurrence: US)
  Receive Date: 20160211
  Receipt Date: 20160211
  Transmission Date: 20160526
  Serious: Yes (Death)
  Sender: FDA-Public Use
  Company Number: US-PERRIGO-16US001081

PATIENT
  Age: 52 Year
  Sex: Female

DRUGS (8)
  1. DILTIAZEM [Suspect]
     Active Substance: DILTIAZEM
     Indication: DRUG ADMINISTRATION ERROR
     Dosage: UNKNOWN, UNKNOWN
     Route: 048
  2. LISINOPRIL. [Suspect]
     Active Substance: LISINOPRIL
     Indication: DRUG ADMINISTRATION ERROR
     Dosage: UNKNOWN, UNKNOWN
     Route: 048
  3. CLOPIDOGREL [Suspect]
     Active Substance: CLOPIDOGREL BISULFATE
     Indication: DRUG ADMINISTRATION ERROR
     Dosage: UNKNOWN, UNKNOWN
     Route: 048
  4. CARVEDILOL. [Suspect]
     Active Substance: CARVEDILOL
     Indication: DRUG ADMINISTRATION ERROR
     Dosage: UNKNOWN, UNKNOWN
     Route: 048
  5. CLONIDINE. [Suspect]
     Active Substance: CLONIDINE
     Indication: DRUG ADMINISTRATION ERROR
     Dosage: UNKNOWN, UNKNOWN
     Route: 048
  6. METOPROLOL. [Suspect]
     Active Substance: METOPROLOL
     Indication: DRUG ADMINISTRATION ERROR
     Dosage: UNKNOWN, UNKNOWN
     Route: 048
  7. POTASSIUM CHLORIDE RX 8 MEQ (600MG) 8Y8 [Suspect]
     Active Substance: POTASSIUM CHLORIDE
     Indication: DRUG ADMINISTRATION ERROR
     Dosage: UNKNOWN, UNKNOWN
     Route: 048
  8. PHENYTOIN. [Suspect]
     Active Substance: PHENYTOIN
     Indication: DRUG ADMINISTRATION ERROR
     Dosage: UNKNOWN, UNKNOWN
     Route: 048

REACTIONS (1)
  - Death [Fatal]
